FAERS Safety Report 5468276-X (Version None)
Quarter: 2007Q3

REPORT INFORMATION
  Report Type: 
  Country: None (occurrence: None)
  Receive Date: 20070926
  Receipt Date: 20070913
  Transmission Date: 20080115
  Serious: Yes (Other)
  Sender: FDA-Public Use
  Company Number: US-ELI_LILLY_AND_COMPANY-US200709003465

PATIENT
  Age: 55 Year
  Sex: Female

DRUGS (4)
  1. CYMBALTA [Suspect]
     Indication: NEURALGIA
     Dosage: 30 MG, 3/D
     Dates: end: 20070901
  2. CYMBALTA [Suspect]
     Dosage: UNK, UNK
     Dates: start: 20070910, end: 20070901
  3. BACLOFEN [Concomitant]
     Dosage: 10 MG, UNK
     Dates: end: 20070910
  4. HYDROCODONE BITARTRATE AND ACETAMINOPHEN [Concomitant]
     Dosage: 10/500 MG 8 TABLETS REDUCED TO 3

REACTIONS (2)
  - LOSS OF CONSCIOUSNESS [None]
  - MEDICATION ERROR [None]
